FAERS Safety Report 14213941 (Version 1)
Quarter: 2017Q4

REPORT INFORMATION
  Report Type: Spontaneous
  Country: US (occurrence: US)
  Receive Date: 20171122
  Receipt Date: 20171122
  Transmission Date: 20180321
  Serious: No
  Sender: FDA-Public Use
  Company Number: US-SUN PHARMACEUTICAL INDUSTRIES LTD-2017US-151078

PATIENT
  Sex: Male

DRUGS (1)
  1. BUPRENORPHINE. [Suspect]
     Active Substance: BUPRENORPHINE
     Indication: BACK PAIN
     Dosage: UNK
     Route: 065
     Dates: start: 2017

REACTIONS (4)
  - Product substitution issue [Unknown]
  - Inappropriate schedule of drug administration [Unknown]
  - Product solubility abnormal [Unknown]
  - Overdose [Unknown]

NARRATIVE: CASE EVENT DATE: 2017
